FAERS Safety Report 9783357 (Version 1)
Quarter: 2013Q4

REPORT INFORMATION
  Report Type: Spontaneous
  Country: US (occurrence: None)
  Receive Date: 20131223
  Receipt Date: 20131223
  Transmission Date: 20140711
  Serious: Yes (Other)
  Sender: FDA-Public Use
  Company Number: AEGR000170

PATIENT
  Age: 72 Year
  Sex: Female
  Weight: 65.8 kg

DRUGS (14)
  1. JUXTAPID [Suspect]
     Indication: HYPERCHOLESTEROLAEMIA
     Route: 048
     Dates: start: 20130529, end: 20130922
  2. ATENOLOL (ATENOLOL) [Concomitant]
  3. NEXIUM (ESOMEPRAZOLE MAGNESIUM) [Concomitant]
  4. ESTRACE (ESTRADIOL) [Concomitant]
  5. ALEVE  (NAPROXEN SODIUM) [Concomitant]
  6. LIVALO (PITAVASTATIN CALCIUM) [Concomitant]
  7. SINGULAIR MONTELUKAST SODIUM [Concomitant]
  8. RESTORIL (TEMAZEPAM) [Concomitant]
  9. DARVOCET [Concomitant]
  10. FLEXERIL (CYCLOBENZAPRINE HYDROCHLORIDE) [Concomitant]
  11. FOLIC ACID (FOLIC ACID) [Concomitant]
  12. VITAMIN E [Concomitant]
  13. OMEGA 3 FISH OIL ( FISH OIL) [Concomitant]
  14. TRIAVIL (AMITRIPTYLINE HYDROCHLORIDE, PERPHENAZINE) [Concomitant]

REACTIONS (3)
  - Aspartate aminotransferase increased [None]
  - Alanine aminotransferase increased [None]
  - Off label use [None]
